FAERS Safety Report 11805936 (Version 2)
Quarter: 2015Q4

REPORT INFORMATION
  Report Type: Spontaneous
  Country: US (occurrence: US)
  Receive Date: 20151207
  Receipt Date: 20151217
  Transmission Date: 20160305
  Serious: No
  Sender: FDA-Public Use
  Company Number: US-AMGEN-USASP2015128116

PATIENT
  Age: 64 Year
  Sex: Female

DRUGS (1)
  1. ENBREL [Suspect]
     Active Substance: ETANERCEPT
     Indication: RHEUMATOID ARTHRITIS
     Dosage: UNK, QWK
     Route: 065
     Dates: start: 2004

REACTIONS (6)
  - Malaise [Unknown]
  - Diarrhoea [Unknown]
  - Contusion [Unknown]
  - Headache [Unknown]
  - Weight decreased [Unknown]
  - Injection site haemorrhage [Unknown]
